FAERS Safety Report 8610297-X (Version None)
Quarter: 2012Q3

REPORT INFORMATION
  Report Type: 
  Country: None (occurrence: None)
  Receive Date: 20120822
  Receipt Date: 20120816
  Transmission Date: 20120928
  Serious: Yes (Hospitalization, Other)
  Sender: FDA-Public Use
  Company Number: PHHY2011CA25995

PATIENT
  Sex: Female

DRUGS (9)
  1. ATARAX [Concomitant]
  2. CALCIUM [Concomitant]
  3. VITAMIN D [Concomitant]
     Dosage: 10000 IU, UNK
  4. ACETYLSALICYLIC ACID SRT [Concomitant]
  5. ZOLEDRONOC ACID [Suspect]
     Dosage: UNK
     Route: 042
     Dates: start: 20110509
  6. NASACORT [Concomitant]
  7. ZOLEDRONOC ACID [Suspect]
     Indication: OSTEOPOROSIS
     Dosage: UNK
     Route: 042
     Dates: start: 20100505
  8. ZOLEDRONOC ACID [Suspect]
     Dosage: UNK
     Route: 042
     Dates: start: 20120515
  9. RESTORIL [Concomitant]
     Dosage: 15 MG, BID

REACTIONS (12)
  - MALAISE [None]
  - TRANSIENT ISCHAEMIC ATTACK [None]
  - GASTROENTERITIS [None]
  - PAIN IN EXTREMITY [None]
  - HEADACHE [None]
  - VOMITING [None]
  - NAUSEA [None]
  - GASTROINTESTINAL DISORDER [None]
  - NASOPHARYNGITIS [None]
  - POOR VENOUS ACCESS [None]
  - INSOMNIA [None]
  - PYREXIA [None]
